FAERS Safety Report 18220840 (Version 5)
Quarter: 2020Q4

REPORT INFORMATION
  Report Type: Report from Study
  Country: US (occurrence: US)
  Receive Date: 20200902
  Receipt Date: 20201217
  Transmission Date: 20210113
  Serious: Yes (Other)
  Sender: FDA-Public Use
  Company Number: NVSC2020US232926

PATIENT
  Sex: Female

DRUGS (2)
  1. TABRECTA [Suspect]
     Active Substance: CAPMATINIB
     Indication: PRODUCT USED FOR UNKNOWN INDICATION
     Dosage: UNK
     Route: 048
  2. TABRECTA [Suspect]
     Active Substance: CAPMATINIB
     Dosage: 300 MG, BID
     Route: 065

REACTIONS (10)
  - Diabetes mellitus [Unknown]
  - Hypertension [Unknown]
  - Fatigue [Unknown]
  - Pyrexia [Unknown]
  - Alopecia [Unknown]
  - Peripheral swelling [Recovering/Resolving]
  - Weight decreased [Unknown]
  - Hepatic enzyme increased [Unknown]
  - Renal impairment [Unknown]
  - Dyspnoea [Unknown]
